FAERS Safety Report 20612629 (Version 15)
Quarter: 2023Q1

REPORT INFORMATION
  Report Type: Other
  Country: GB (occurrence: GB)
  Receive Date: 20220318
  Receipt Date: 20230215
  Transmission Date: 20230417
  Serious: Yes (Hospitalization, Other)
  Sender: FDA-Public Use
  Company Number: GB-ROCHE-3048873

PATIENT
  Age: 45 Year
  Sex: Female
  Weight: 80 kg

DRUGS (45)
  1. TRASTUZUMAB [Suspect]
     Active Substance: TRASTUZUMAB
     Indication: Breast cancer metastatic
     Route: 041
     Dates: start: 20151217, end: 20160308
  2. TRASTUZUMAB [Suspect]
     Active Substance: TRASTUZUMAB
     Route: 042
     Dates: start: 20150803, end: 20150803
  3. TRASTUZUMAB [Suspect]
     Active Substance: TRASTUZUMAB
     Route: 042
     Dates: start: 20160623
  4. PERTUZUMAB [Suspect]
     Active Substance: PERTUZUMAB
     Indication: Breast cancer metastatic
     Route: 042
     Dates: start: 20151217, end: 20160308
  5. PERTUZUMAB [Suspect]
     Active Substance: PERTUZUMAB
     Dosage: 840 MG, 1X (LOADING DOSE)
     Route: 042
     Dates: start: 20160623, end: 20160623
  6. PERTUZUMAB [Suspect]
     Active Substance: PERTUZUMAB
     Dosage: MAINTAINANCE DOSE
     Route: 042
     Dates: start: 20150825, end: 20151117
  7. PERTUZUMAB [Suspect]
     Active Substance: PERTUZUMAB
     Dosage: MAINTAINANCE DOSE
     Route: 042
     Dates: start: 20160715
  8. PERTUZUMAB [Suspect]
     Active Substance: PERTUZUMAB
     Dosage: ONE CYCLE (LOADING DOSE)
     Route: 042
     Dates: start: 20150804
  9. TRASTUZUMAB [Suspect]
     Active Substance: TRASTUZUMAB
     Indication: Breast cancer metastatic
     Dosage: LOADING DOSE
     Route: 058
     Dates: start: 20151217, end: 20160308
  10. TRASTUZUMAB [Suspect]
     Active Substance: TRASTUZUMAB
     Route: 058
     Dates: start: 20150803, end: 20150803
  11. TRASTUZUMAB [Suspect]
     Active Substance: TRASTUZUMAB
     Route: 058
     Dates: start: 20160623
  12. TRASTUZUMAB [Suspect]
     Active Substance: TRASTUZUMAB
     Route: 058
     Dates: start: 20150825, end: 20151117
  13. TRASTUZUMAB [Suspect]
     Active Substance: TRASTUZUMAB
     Route: 058
     Dates: start: 20160308, end: 20160308
  14. TRASTUZUMAB [Suspect]
     Active Substance: TRASTUZUMAB
     Route: 058
     Dates: start: 20160723
  15. DOCETAXEL [Suspect]
     Active Substance: DOCETAXEL
     Indication: Breast cancer metastatic
     Route: 042
     Dates: start: 20150814, end: 20151117
  16. DOCETAXEL [Suspect]
     Active Substance: DOCETAXEL
     Route: 065
     Dates: start: 20150217, end: 20160308
  17. DOCETAXEL [Suspect]
     Active Substance: DOCETAXEL
     Route: 065
     Dates: start: 20150814, end: 20151117
  18. DOCETAXEL [Suspect]
     Active Substance: DOCETAXEL
     Route: 042
     Dates: start: 20150808, end: 20151117
  19. DOCETAXEL [Suspect]
     Active Substance: DOCETAXEL
     Route: 042
     Dates: start: 20150804, end: 20150804
  20. DOCETAXEL [Suspect]
     Active Substance: DOCETAXEL
     Route: 042
     Dates: start: 20151217, end: 20160308
  21. EXEMESTANE [Suspect]
     Active Substance: EXEMESTANE
     Indication: Breast cancer metastatic
     Route: 048
     Dates: start: 20150518
  22. EXEMESTANE [Suspect]
     Active Substance: EXEMESTANE
     Indication: Metastases to bone
     Route: 065
     Dates: start: 20180723
  23. PIPERACILLIN SODIUM\TAZOBACTAM SODIUM [Concomitant]
     Active Substance: PIPERACILLIN SODIUM\TAZOBACTAM SODIUM
  24. ACETAMINOPHEN [Concomitant]
     Active Substance: ACETAMINOPHEN
  25. CALCIUM [Concomitant]
     Active Substance: CALCIUM
  26. MEROPENEM [Concomitant]
     Active Substance: MEROPENEM
  27. RAMIPRIL [Concomitant]
     Active Substance: RAMIPRIL
  28. GENTAMICIN [Concomitant]
     Active Substance: GENTAMICIN
  29. BISOPROLOL [Concomitant]
     Active Substance: BISOPROLOL
  30. IRON [Concomitant]
     Active Substance: IRON
     Indication: Serum ferritin decreased
  31. DENOSUMAB [Concomitant]
     Active Substance: DENOSUMAB
     Route: 058
     Dates: start: 20160127
  32. DENOSUMAB [Concomitant]
     Active Substance: DENOSUMAB
     Route: 058
     Dates: start: 20150803
  33. AMOXICILLIN\CLAVULANATE POTASSIUM [Concomitant]
     Active Substance: AMOXICILLIN\CLAVULANATE POTASSIUM
  34. BENZYDAMINE [Concomitant]
     Active Substance: BENZYDAMINE
  35. CIPROFLOXACIN [Concomitant]
     Active Substance: CIPROFLOXACIN
  36. DEXAMETHASONE [Concomitant]
     Active Substance: DEXAMETHASONE
     Route: 048
     Dates: start: 20150803
  37. BENZYDAMINE HYDROCHLORIDE [Concomitant]
     Active Substance: BENZYDAMINE HYDROCHLORIDE
     Indication: Gingival swelling
     Dosage: 15 MG, QID
     Dates: start: 20150308, end: 20150817
  38. BENZYDAMINE HYDROCHLORIDE [Concomitant]
     Active Substance: BENZYDAMINE HYDROCHLORIDE
     Indication: Metastases to bone
     Dosage: 15 MG, QID
     Dates: start: 201508
  39. BENZYDAMINE HYDROCHLORIDE [Concomitant]
     Active Substance: BENZYDAMINE HYDROCHLORIDE
     Dosage: 60 ML, QD
     Dates: start: 20150803, end: 20150817
  40. XGEVA [Concomitant]
     Active Substance: DENOSUMAB
     Indication: Product used for unknown indication
     Dosage: UNK UNK, Q3WK
     Route: 058
     Dates: start: 20150803
  41. XGEVA [Concomitant]
     Active Substance: DENOSUMAB
     Dosage: 120 MG, 1/MONTH (CUMULATIVE DOSE: 1564.0 MG)
     Route: 058
     Dates: start: 20160127, end: 201802
  42. XGEVA [Concomitant]
     Active Substance: DENOSUMAB
     Dosage: 120 MG, 1/MONTH (CUMULATIVE DOSE: 716.1667 MG)
     Route: 058
     Dates: start: 20160127, end: 201802
  43. XGEVA [Concomitant]
     Active Substance: DENOSUMAB
     Dosage: 24 MILLIGRAM EVERY 3 DAYS (CUMULATIVE DOSE: 16.0 MG)
     Route: 058
     Dates: start: 20150803
  44. XGEVA [Concomitant]
     Active Substance: DENOSUMAB
     Dosage: 1 EVERY 3 WEEKS; 3 DAYS 2 WEEKS
     Dates: start: 20150803
  45. BENZYDAMINE HYDROCHLORIDE [Concomitant]
     Active Substance: BENZYDAMINE HYDROCHLORIDE
     Indication: Product used for unknown indication
     Dates: start: 20150315, end: 20150817

REACTIONS (16)
  - Anaemia [Recovered/Resolved]
  - Vascular device infection [Recovered/Resolved]
  - Fatigue [Recovered/Resolved]
  - Epistaxis [Recovered/Resolved]
  - Ejection fraction decreased [Recovered/Resolved]
  - Lymphoedema [Recovered/Resolved]
  - Osteonecrosis of jaw [Not Recovered/Not Resolved]
  - Ejection fraction decreased [Recovered/Resolved]
  - Hot flush [Unknown]
  - Gingival swelling [Recovered/Resolved]
  - Influenza like illness [Recovered/Resolved]
  - Gastrooesophageal reflux disease [Recovered/Resolved]
  - Mucosal inflammation [Recovered/Resolved]
  - Alopecia [Recovered/Resolved]
  - Diarrhoea [Recovered/Resolved]
  - Rash [Recovered/Resolved]

NARRATIVE: CASE EVENT DATE: 20150801
